FAERS Safety Report 21143296 (Version 1)
Quarter: 2022Q3

REPORT INFORMATION
  Report Type: Spontaneous
  Country: US (occurrence: US)
  Receive Date: 20220728
  Receipt Date: 20220728
  Transmission Date: 20221026
  Serious: No
  Sender: FDA-Public Use
  Company Number: US-BIOGEN-2018BI00510260

PATIENT
  Sex: Female
  Weight: 75.818 kg

DRUGS (18)
  1. TECFIDERA [Suspect]
     Active Substance: DIMETHYL FUMARATE
     Indication: Multiple sclerosis
     Dosage: MAINTENANCE DOSE
     Route: 050
  2. TECFIDERA [Suspect]
     Active Substance: DIMETHYL FUMARATE
     Dosage: STARTING DOSE
     Route: 050
     Dates: start: 20180109, end: 20220711
  3. TRAMADOL [Concomitant]
     Active Substance: TRAMADOL
     Route: 050
  4. ZENPEP [Concomitant]
     Active Substance: PANCRELIPASE AMYLASE\PANCRELIPASE LIPASE\PANCRELIPASE PROTEASE
     Route: 050
  5. AMITRIPTYLINE [Concomitant]
     Active Substance: AMITRIPTYLINE
     Route: 050
  6. BACLOFEN [Concomitant]
     Active Substance: BACLOFEN
     Route: 050
  7. DOXEPIN [Concomitant]
     Active Substance: DOXEPIN
     Route: 050
  8. FUROSEMIDE [Concomitant]
     Active Substance: FUROSEMIDE
     Route: 050
  9. HYDROXYZINE [Concomitant]
     Active Substance: HYDROXYZINE HYDROCHLORIDE
     Route: 050
  10. LIDOCAINE PATCH [Concomitant]
     Active Substance: LIDOCAINE
     Route: 050
  11. LISNOPRIL [Concomitant]
     Route: 050
  12. LYRICA [Concomitant]
     Active Substance: PREGABALIN
     Route: 050
  13. MELOXICAM [Concomitant]
     Active Substance: MELOXICAM
     Route: 050
  14. METAXALONE [Concomitant]
     Active Substance: METAXALONE
     Route: 050
  15. PANTOPRAZOLE [Concomitant]
     Active Substance: PANTOPRAZOLE
     Route: 050
  16. PROPRANOLOL [Concomitant]
     Active Substance: PROPRANOLOL HYDROCHLORIDE
     Route: 050
  17. RANITIDINE [Concomitant]
     Active Substance: RANITIDINE
     Route: 050
  18. ZOLPIDEM [Concomitant]
     Active Substance: ZOLPIDEM TARTRATE
     Route: 050

REACTIONS (5)
  - Visual impairment [Unknown]
  - Flushing [Not Recovered/Not Resolved]
  - Erythema [Unknown]
  - Abdominal pain upper [Unknown]
  - Nausea [Unknown]
